FAERS Safety Report 15727785 (Version 1)
Quarter: 2018Q4

REPORT INFORMATION
  Report Type: Spontaneous
  Country: US (occurrence: US)
  Receive Date: 20181217
  Receipt Date: 20181217
  Transmission Date: 20190205
  Serious: No
  Sender: FDA-Public Use
  Company Number: US-PFIZER INC-2018506584

PATIENT
  Age: 42 Year
  Sex: Female
  Weight: 72.56 kg

DRUGS (1)
  1. SOLU-MEDROL [Suspect]
     Active Substance: METHYLPREDNISOLONE SODIUM SUCCINATE
     Dosage: UNK

REACTIONS (3)
  - Heart rate increased [Unknown]
  - Erythema [Unknown]
  - Drug hypersensitivity [Unknown]
